FAERS Safety Report 7602163-3 (Version None)
Quarter: 2011Q3

REPORT INFORMATION
  Report Type: 
  Country: None (occurrence: None)
  Receive Date: 20110711
  Receipt Date: 20110630
  Transmission Date: 20111222
  Serious: Yes (Other)
  Sender: FDA-Public Use
  Company Number: US-BAYER-2011-056930

PATIENT
  Age: 23 Year
  Sex: Male

DRUGS (1)
  1. AVELOX [Suspect]
     Indication: PNEUMONIA
     Dosage: UNK
     Dates: start: 20110609, end: 20110620

REACTIONS (4)
  - DEPRESSION [None]
  - ANXIETY [None]
  - HALLUCINATION [None]
  - CONFUSIONAL STATE [None]
